FAERS Safety Report 7237139 (Version 5)
Quarter: 2014Q1

REPORT INFORMATION
  Report Type: Spontaneous
  Country: US (occurrence: US)
  Receive Date: 20100105
  Receipt Date: 20140203
  Transmission Date: 20141002
  Serious: Yes (Other)
  Sender: FDA-Public Use
  Company Number: US-BAYER-200944117NA

PATIENT
  Age: 19 Year
  Sex: Female

DRUGS (6)
  1. YAZ [Suspect]
     Indication: CONTRACEPTION
     Dosage: UNK
     Dates: start: 20060924, end: 20070924
  2. YASMIN [Suspect]
  3. ORTHO EVRA [Concomitant]
     Dosage: UNK
     Dates: start: 20060813
  4. LOESTRIN FE [Concomitant]
     Dosage: UNK
     Dates: start: 20071005
  5. VELIVET [Concomitant]
     Dosage: UNK
     Dates: start: 20071010
  6. LISINOPRIL [Concomitant]

REACTIONS (2)
  - Cholelithiasis [None]
  - Cholecystitis chronic [None]
